FAERS Safety Report 17993863 (Version 1)
Quarter: 2020Q3

REPORT INFORMATION
  Report Type: Spontaneous
  Country: CN (occurrence: CN)
  Receive Date: 20200708
  Receipt Date: 20200708
  Transmission Date: 20201103
  Serious: Yes (Hospitalization, Other)
  Sender: FDA-Public Use
  Company Number: CN-ROCHE-2631265

PATIENT
  Age: 36 Year
  Sex: Male

DRUGS (6)
  1. NIFEDIPINE. [Concomitant]
     Active Substance: NIFEDIPINE
     Route: 065
  2. DEXAMETHASONE. [Suspect]
     Active Substance: DEXAMETHASONE
     Indication: ANGIOCENTRIC LYMPHOMA
     Dosage: 1 COURSE PER MONTH, 8 COURSES IN TOTAL
     Route: 042
     Dates: start: 201706, end: 20180122
  3. BEVACIZUMAB. [Suspect]
     Active Substance: BEVACIZUMAB
     Indication: ANGIOCENTRIC LYMPHOMA
     Dosage: 1 COURSE PER MONTH, 8 COURSES IN TOTAL.
     Route: 042
     Dates: start: 201706, end: 20180122
  4. OXALIPLATIN. [Suspect]
     Active Substance: OXALIPLATIN
     Indication: ANGIOCENTRIC LYMPHOMA
     Dosage: 1 COURSE PER MONTH, 8 COURSES IN TOTAL.
     Route: 042
     Dates: start: 201706, end: 20180122
  5. GEMCITABINE. [Suspect]
     Active Substance: GEMCITABINE
     Indication: ANGIOCENTRIC LYMPHOMA
     Dosage: 1 COURSE PER MONTH, 8 COURSES IN TOTAL.
     Route: 042
     Dates: start: 201706, end: 20180122
  6. PEGASPARGASE [Suspect]
     Active Substance: PEGASPARGASE
     Indication: ANGIOCENTRIC LYMPHOMA
     Dosage: 1 COURSE PER MONTH, 8 COURSES IN TOTAL.
     Route: 030
     Dates: start: 201706, end: 20180122

REACTIONS (14)
  - Thrombotic microangiopathy [Unknown]
  - Left ventricular enlargement [Unknown]
  - Intentional product use issue [Unknown]
  - Tricuspid valve incompetence [Unknown]
  - Pulmonary hypertension [Unknown]
  - Pericardial effusion [Unknown]
  - Hypertension [Unknown]
  - Left ventricular dysfunction [Unknown]
  - Left atrial enlargement [Unknown]
  - Off label use [Unknown]
  - Aortic dilatation [Unknown]
  - Right atrial enlargement [Unknown]
  - Renal impairment [Unknown]
  - Mitral valve incompetence [Unknown]
